FAERS Safety Report 14402786 (Version 2)
Quarter: 2019Q1

REPORT INFORMATION
  Report Type: Spontaneous
  Country: US (occurrence: US)
  Receive Date: 20180117
  Receipt Date: 20190227
  Transmission Date: 20190417
  Serious: No
  Sender: FDA-Public Use
  Company Number: US-NOVOPROD-577190

PATIENT
  Age: 50 Year
  Sex: Female
  Weight: 83.9 kg

DRUGS (5)
  1. CYCLOSET [Suspect]
     Active Substance: BROMOCRIPTINE MESYLATE
     Indication: GLUCOSE TOLERANCE IMPAIRED
     Dosage: 1 MG, UNK
     Dates: start: 20171127, end: 20171130
  2. SAXENDA [Suspect]
     Active Substance: LIRAGLUTIDE
     Dosage: 0.6 MG, QD
     Route: 058
  3. SAXENDA [Suspect]
     Active Substance: LIRAGLUTIDE
     Dosage: 1.2 MG, QD
     Route: 058
  4. VALSARTAN. [Concomitant]
     Active Substance: VALSARTAN
     Indication: HYPERTENSION
     Dosage: 80 MG, QD
  5. SAXENDA [Suspect]
     Active Substance: LIRAGLUTIDE
     Indication: WEIGHT DECREASED
     Dosage: 3 MG, QD
     Route: 058
     Dates: start: 2017, end: 20171203

REACTIONS (4)
  - Chest discomfort [Recovered/Resolved]
  - Bowel movement irregularity [Recovered/Resolved]
  - Headache [Recovered/Resolved]
  - Gastrooesophageal reflux disease [Recovered/Resolved]

NARRATIVE: CASE EVENT DATE: 2017
